FAERS Safety Report 22147995 (Version 1)
Quarter: 2023Q1

REPORT INFORMATION
  Report Type: Spontaneous
  Country: FR (occurrence: FR)
  Receive Date: 20230328
  Receipt Date: 20230328
  Transmission Date: 20230418
  Serious: Yes (Life-Threatening, Hospitalization)
  Sender: FDA-Public Use
  Company Number: None

PATIENT
  Age: 68 Year
  Sex: Male

DRUGS (6)
  1. OXALIPLATIN [Suspect]
     Active Substance: OXALIPLATIN
     Indication: Rectal adenocarcinoma
     Dosage: UNK
     Route: 042
     Dates: start: 20230302, end: 20230302
  2. LEVOLEUCOVORIN CALCIUM [Suspect]
     Active Substance: LEVOLEUCOVORIN CALCIUM
     Indication: Rectal adenocarcinoma
     Dosage: UNK
     Route: 042
     Dates: start: 20230302, end: 20230302
  3. FLUOROURACIL [Suspect]
     Active Substance: FLUOROURACIL
     Indication: Rectal adenocarcinoma
     Dosage: UNK
     Route: 042
     Dates: start: 20230302, end: 20230302
  4. INNOHEP [Concomitant]
     Active Substance: TINZAPARIN SODIUM
     Dosage: UNK
     Route: 065
  5. EBASTINE [Concomitant]
     Active Substance: EBASTINE
     Dosage: UNK
     Route: 065
  6. OMEPRAZOLE [Concomitant]
     Active Substance: OMEPRAZOLE
     Dosage: UNK
     Route: 065

REACTIONS (2)
  - Anaphylactic shock [Recovering/Resolving]
  - Intestinal ischaemia [Recovering/Resolving]

NARRATIVE: CASE EVENT DATE: 20230302
